FAERS Safety Report 5392922-2 (Version None)
Quarter: 2007Q3

REPORT INFORMATION
  Report Type: 
  Country: None (occurrence: None)
  Receive Date: 20070718
  Receipt Date: 20070710
  Transmission Date: 20080115
  Serious: Yes (Hospitalization)
  Sender: FDA-Public Use
  Company Number: 013-C5013-07060367

PATIENT
  Age: 81 Year
  Sex: Female
  Weight: 66.1 kg

DRUGS (1)
  1. CC-5013/PLACEBO (LENALIDOMIDE) (CAPSULES) [Suspect]
     Indication: MYELODYSPLASTIC SYNDROME
     Dosage: ORAL
     Route: 048
     Dates: start: 20061110

REACTIONS (1)
  - SKIN ULCER [None]
